FAERS Safety Report 20999963 (Version 1)
Quarter: 2022Q2

REPORT INFORMATION
  Report Type: Spontaneous
  Country: CN (occurrence: None)
  Receive Date: 20220623
  Receipt Date: 20220623
  Transmission Date: 20220721
  Serious: Yes (Other)
  Sender: FDA-Public Use
  Company Number: 2022A226407

PATIENT
  Age: 68 Year
  Sex: Female

DRUGS (2)
  1. TAGRISSO [Suspect]
     Active Substance: OSIMERTINIB
     Indication: Lung adenocarcinoma
     Route: 048
     Dates: start: 20211101
  2. HERBALS [Suspect]
     Active Substance: HERBALS
     Indication: Lung adenocarcinoma
     Route: 065
     Dates: start: 20220101

REACTIONS (1)
  - Torsade de pointes [Recovering/Resolving]
